FAERS Safety Report 14909748 (Version 1)
Quarter: 2018Q2

REPORT INFORMATION
  Report Type: Spontaneous
  Country: US (occurrence: US)
  Receive Date: 20180517
  Receipt Date: 20180517
  Transmission Date: 20180711
  Serious: Yes (Hospitalization)
  Sender: FDA-Public Use
  Company Number: US-PROCTER_AND_GAMBLE-GS18056062

PATIENT
  Age: 68 Year
  Sex: Female

DRUGS (1)
  1. SECRET ANTIPERSPIRANT/DEODORANT POWDER FRESH [Suspect]
     Active Substance: ALUMINUM ZIRCONIUM TRICHLOROHYDREX GLY
     Route: 048

REACTIONS (11)
  - Exposure via ingestion [Unknown]
  - Poisoning deliberate [Not Recovered/Not Resolved]
  - Amnesia [Not Recovered/Not Resolved]
  - Drug level increased [Not Recovered/Not Resolved]
  - Headache [Not Recovered/Not Resolved]
  - Back pain [Not Recovered/Not Resolved]
  - Vomiting [Not Recovered/Not Resolved]
  - Malaise [Not Recovered/Not Resolved]
  - Dyspepsia [Not Recovered/Not Resolved]
  - Gastrointestinal disorder [Unknown]
  - Victim of chemical submission [Not Recovered/Not Resolved]

NARRATIVE: CASE EVENT DATE: 2014
